FAERS Safety Report 20215145 (Version 5)
Quarter: 2022Q3

REPORT INFORMATION
  Report Type: Report from Study
  Country: US (occurrence: US)
  Receive Date: 20211222
  Receipt Date: 20220924
  Transmission Date: 20221026
  Serious: Yes (Life-Threatening, Hospitalization, Other)
  Sender: FDA-Public Use
  Company Number: US-JNJFOC-20211238336

PATIENT
  Sex: Male
  Weight: 124.5 kg

DRUGS (6)
  1. DARATUMUMAB [Suspect]
     Active Substance: DARATUMUMAB
     Indication: Plasma cell myeloma
     Dosage: LAST ADMINISTERED DOSE 30-NOV-2021
     Route: 065
     Dates: start: 20210817, end: 20211130
  2. DARATUMUMAB [Suspect]
     Active Substance: DARATUMUMAB
     Dosage: LAST ADMINISTERED DOSE 14-DEC-2021
     Route: 065
     Dates: start: 20210817
  3. DEXAMETHASONE [Suspect]
     Active Substance: DEXAMETHASONE
     Indication: Plasma cell myeloma
     Dosage: LAST ADMINISTERED DOSE 07-DEC-2021
     Route: 048
     Dates: start: 20210817, end: 20211207
  4. DEXAMETHASONE [Suspect]
     Active Substance: DEXAMETHASONE
     Dosage: LAST ADMINISTERED DOSE 20-DEC-2021
     Route: 048
     Dates: start: 20211220
  5. LENALIDOMIDE [Suspect]
     Active Substance: LENALIDOMIDE
     Indication: Plasma cell myeloma
     Route: 048
     Dates: start: 20210817, end: 20211206
  6. LENALIDOMIDE [Suspect]
     Active Substance: LENALIDOMIDE
     Dosage: LAST ADMINISTERED DOSE 06-DEC-2021
     Route: 048
     Dates: start: 20210817

REACTIONS (2)
  - Pulmonary embolism [Not Recovered/Not Resolved]
  - Blood bilirubin increased [Not Recovered/Not Resolved]

NARRATIVE: CASE EVENT DATE: 20211214
